FAERS Safety Report 12484852 (Version 1)
Quarter: 2016Q2

REPORT INFORMATION
  Report Type: Spontaneous
  Country: GB (occurrence: GB)
  Receive Date: 20160621
  Receipt Date: 20160621
  Transmission Date: 20160815
  Serious: Yes (Disabling)
  Sender: FDA-Public Use
  Company Number: PHHY2016GB082673

PATIENT
  Age: 68 Year
  Sex: Male

DRUGS (4)
  1. DORZOLAMIDE [Suspect]
     Active Substance: DORZOLAMIDE
     Indication: PRODUCT USED FOR UNKNOWN INDICATION
     Route: 047
  2. ACETAZOLAMIDE. [Suspect]
     Active Substance: ACETAZOLAMIDE
     Indication: PRODUCT USED FOR UNKNOWN INDICATION
     Dosage: 250 MG,
     Route: 065
  3. IOPIDINE [Concomitant]
     Active Substance: APRACLONIDINE HYDROCHLORIDE
     Indication: PRODUCT USED FOR UNKNOWN INDICATION
     Dosage: 5MG/ML
     Route: 047
  4. LATANOPROST. [Suspect]
     Active Substance: LATANOPROST
     Indication: PRODUCT USED FOR UNKNOWN INDICATION
     Dosage: 50MICROGRAMS/ML
     Route: 047

REACTIONS (1)
  - Rash [Not Recovered/Not Resolved]
